FAERS Safety Report 21719170 (Version 1)
Quarter: 2022Q4

REPORT INFORMATION
  Report Type: Spontaneous
  Country: US (occurrence: US)
  Receive Date: 20221213
  Receipt Date: 20221213
  Transmission Date: 20230113
  Serious: No
  Sender: FDA-Public Use
  Company Number: US-APOTEX-2022AP016399

PATIENT
  Sex: Male

DRUGS (1)
  1. NICOTINE [Suspect]
     Active Substance: NICOTINE
     Indication: Smoking cessation therapy
     Dosage: UNK
     Route: 062
     Dates: start: 202211, end: 202211

REACTIONS (6)
  - Ocular discomfort [Unknown]
  - Confusional state [Unknown]
  - Pruritus [Unknown]
  - Urticaria [Unknown]
  - Application site swelling [Unknown]
  - Application site erythema [Unknown]

NARRATIVE: CASE EVENT DATE: 20221101
